FAERS Safety Report 23970237 (Version 3)
Quarter: 2024Q2

REPORT INFORMATION
  Report Type: Spontaneous
  Country: US (occurrence: US)
  Receive Date: 20240613
  Receipt Date: 20240628
  Transmission Date: 20240716
  Serious: No
  Sender: FDA-Public Use
  Company Number: US-002147023-NVSC2024US122932

PATIENT

DRUGS (1)
  1. KESIMPTA [Suspect]
     Active Substance: OFATUMUMAB
     Indication: Product used for unknown indication
     Dosage: UNK (TOOK SHOT AT 6 PM)
     Route: 065

REACTIONS (9)
  - Muscle strain [Unknown]
  - Musculoskeletal stiffness [Unknown]
  - Pyrexia [Unknown]
  - Pain in extremity [Unknown]
  - Insomnia [Unknown]
  - Malaise [Unknown]
  - Illness [Unknown]
  - Influenza [Unknown]
  - Headache [Unknown]
